FAERS Safety Report 21171763 (Version 2)
Quarter: 2022Q3

REPORT INFORMATION
  Report Type: Spontaneous
  Country: US (occurrence: US)
  Receive Date: 20220804
  Receipt Date: 20220815
  Transmission Date: 20221027
  Serious: Yes (Life-Threatening, Hospitalization, Other)
  Sender: FDA-Public Use
  Company Number: US-PFIZER INC-PV202200034039

PATIENT
  Age: 17 Year
  Sex: Female
  Weight: 103 kg

DRUGS (4)
  1. AMLODIPINE BESYLATE [Suspect]
     Active Substance: AMLODIPINE BESYLATE
     Dosage: 500 TO 550 MG
  2. ACETAMINOPHEN [Suspect]
     Active Substance: ACETAMINOPHEN
     Dosage: UNK
  3. AMOXICILLIN [Suspect]
     Active Substance: AMOXICILLIN
     Dosage: UNK
  4. IBUPROFEN [Suspect]
     Active Substance: IBUPROFEN
     Dosage: UNK

REACTIONS (3)
  - Intentional overdose [Unknown]
  - Circulatory collapse [Recovering/Resolving]
  - Toxicity to various agents [Recovering/Resolving]
